FAERS Safety Report 9161590 (Version 1)
Quarter: 2013Q1

REPORT INFORMATION
  Report Type: Spontaneous
  Country: US (occurrence: US)
  Receive Date: 20130313
  Receipt Date: 20130313
  Transmission Date: 20140127
  Serious: No
  Sender: FDA-Public Use
  Company Number: US-009507513-1303USA004117

PATIENT
  Age: 30 Year
  Sex: Female
  Weight: 99.77 kg

DRUGS (1)
  1. IMPLANON [Suspect]
     Dosage: 1 DF, UNK
     Dates: start: 20100301

REACTIONS (5)
  - Medical device complication [Unknown]
  - Device difficult to use [Unknown]
  - Device deployment issue [Unknown]
  - No adverse event [Unknown]
  - Incorrect drug administration duration [Unknown]
